FAERS Safety Report 14555956 (Version 2)
Quarter: 2018Q1

REPORT INFORMATION
  Report Type: Report from Study
  Country: US (occurrence: US)
  Receive Date: 20180221
  Receipt Date: 20180330
  Transmission Date: 20180509
  Serious: Yes (Death, Life-Threatening, Hospitalization)
  Sender: FDA-Public Use
  Company Number: PHEH2018US006734

PATIENT
  Age: 80 Year
  Sex: Female
  Weight: 60.5 kg

DRUGS (1)
  1. ENTRESTO [Suspect]
     Active Substance: SACUBITRIL\VALSARTAN
     Indication: PRODUCT USED FOR UNKNOWN INDICATION
     Dosage: 1 DF (24MG SACUBITRILA ND 26MG VALSARTAN), UNK
     Route: 048

REACTIONS (2)
  - Peripheral ischaemia [Fatal]
  - Lung cancer metastatic [Fatal]

NARRATIVE: CASE EVENT DATE: 20180121
